FAERS Safety Report 6890170-8 (Version None)
Quarter: 2010Q3

REPORT INFORMATION
  Report Type: 
  Country: None (occurrence: None)
  Receive Date: 20100730
  Receipt Date: 20080817
  Transmission Date: 20110219
  Serious: No
  Sender: FDA-Public Use
  Company Number: US-PFIZER INC-2008068956

PATIENT
  Sex: Female
  Weight: 65.77 kg

DRUGS (3)
  1. LIPITOR [Suspect]
     Indication: BLOOD CHOLESTEROL INCREASED
     Route: 048
     Dates: start: 20080729, end: 20080815
  2. MONTELUKAST SODIUM [Concomitant]
     Indication: ASTHMA
  3. PREMARIN [Concomitant]

REACTIONS (8)
  - CHILLS [None]
  - CHROMATURIA [None]
  - DECREASED APPETITE [None]
  - FATIGUE [None]
  - HEADACHE [None]
  - MALAISE [None]
  - MYALGIA [None]
  - WEIGHT DECREASED [None]
